FAERS Safety Report 5266997-5 (Version None)
Quarter: 2007Q1

REPORT INFORMATION
  Report Type: 
  Country: None (occurrence: None)
  Receive Date: 20061213
  Receipt Date: 20030410
  Transmission Date: 20070707
  Serious: No
  Sender: FDA-Public Use
  Company Number: 2003UW04766

PATIENT
  Age: 50 Year
  Sex: Female

DRUGS (3)
  1. TAMOXIFEN CITRATE [Suspect]
     Indication: BREAST CANCER
  2. CHEMO-THERAPY [Concomitant]
  3. SYNTHROID [Concomitant]

REACTIONS (1)
  - ENDOMETRIAL CANCER [None]
